FAERS Safety Report 9399417 (Version 1)
Quarter: 2013Q3

REPORT INFORMATION
  Report Type: Spontaneous
  Country: IT (occurrence: None)
  Receive Date: 20130710
  Receipt Date: 20130710
  Transmission Date: 20140515
  Serious: Yes (Death, Hospitalization)
  Sender: FDA-Public Use
  Company Number: C-13-066

PATIENT
  Age: 55 Year
  Sex: Male

DRUGS (1)
  1. KAYEXALATE [Suspect]
     Indication: HYPERKALAEMIA

REACTIONS (2)
  - Bronchopneumonia [None]
  - Aspiration [None]
